FAERS Safety Report 10268805 (Version 3)
Quarter: 2014Q3

REPORT INFORMATION
  Report Type: Spontaneous
  Country: US (occurrence: US)
  Receive Date: 20140630
  Receipt Date: 20140813
  Transmission Date: 20150326
  Serious: Yes (Other)
  Sender: FDA-Public Use
  Company Number: CHPA2014US008711

PATIENT
  Sex: Female

DRUGS (4)
  1. VOLTAREN [Suspect]
     Active Substance: DICLOFENAC SODIUM
     Indication: OFF LABEL USE
  2. VOLTAREN [Suspect]
     Active Substance: DICLOFENAC SODIUM
     Indication: OFF LABEL USE
  3. VOLTAREN [Suspect]
     Active Substance: DICLOFENAC SODIUM
     Indication: FOOT DEFORMITY
     Dosage: NICKLE SIZE AMOUNT, PRN
     Route: 061
     Dates: start: 201209
  4. VOLTAREN [Suspect]
     Active Substance: DICLOFENAC SODIUM
     Indication: ARTHRALGIA

REACTIONS (4)
  - Wrong technique in drug usage process [Unknown]
  - Road traffic accident [Recovering/Resolving]
  - Discomfort [Unknown]
  - Therapeutic response changed [Unknown]

NARRATIVE: CASE EVENT DATE: 201209
